FAERS Safety Report 13173140 (Version 1)
Quarter: 2017Q1

REPORT INFORMATION
  Report Type: Other
  Country: US (occurrence: US)
  Receive Date: 20170201
  Receipt Date: 20170201
  Transmission Date: 20170428
  Serious: Yes (Other)
  Sender: FDA-Public Use
  Company Number: US-SHIRE-US201701753

PATIENT
  Age: 56 Year
  Sex: Female

DRUGS (1)
  1. LIALDA [Suspect]
     Active Substance: MESALAMINE
     Indication: PRODUCT USED FOR UNKNOWN INDICATION
     Dosage: UNK, UNKNOWN
     Route: 048
     Dates: start: 201503, end: 20170119

REACTIONS (3)
  - Bloody discharge [Unknown]
  - Frequent bowel movements [Unknown]
  - Gastrointestinal ulcer [Unknown]

NARRATIVE: CASE EVENT DATE: 20170120
